FAERS Safety Report 24175472 (Version 1)
Quarter: 2024Q3

REPORT INFORMATION
  Report Type: Spontaneous
  Country: US (occurrence: US)
  Receive Date: 20240805
  Receipt Date: 20240805
  Transmission Date: 20241016
  Serious: No
  Sender: EVOKE PHARMA
  Company Number: US-EVOKE PHARMA, INC.-2023EVO000126

PATIENT

DRUGS (3)
  1. GIMOTI [Suspect]
     Active Substance: METOCLOPRAMIDE HYDROCHLORIDE
     Indication: Impaired gastric emptying
     Dosage: 15 MILLIGRAM, 1 SPRAY IN ONE NOSTRIL 30 MINUTES BEFORE EACH MEAL AND AT BEDTIME. MAXIMUM OF FOUR TIM
     Route: 045
     Dates: start: 202305, end: 202307
  2. SIMPLY SALINE [Concomitant]
     Indication: Dry skin prophylaxis
  3. MIRALAX [Concomitant]
     Active Substance: POLYETHYLENE GLYCOL 3350
     Indication: Laxative supportive care

REACTIONS (7)
  - Nasal dryness [Not Recovered/Not Resolved]
  - Dry throat [Unknown]
  - Dry mouth [Unknown]
  - Epistaxis [Unknown]
  - Periorbital discomfort [Unknown]
  - Cough [Unknown]
  - Change of bowel habit [Unknown]

NARRATIVE: CASE EVENT DATE: 20230101
